FAERS Safety Report 7633268-9 (Version None)
Quarter: 2011Q3

REPORT INFORMATION
  Report Type: 
  Country: None (occurrence: None)
  Receive Date: 20110725
  Receipt Date: 20110718
  Transmission Date: 20111222
  Serious: Yes (Other)
  Sender: FDA-Public Use
  Company Number: US-ROCHE-791613

PATIENT
  Age: 63 Year
  Sex: Female

DRUGS (4)
  1. OSELTAMIVIR [Suspect]
     Route: 048
  2. RIMANTADINE HYDROCHLORIDE [Suspect]
     Route: 048
  3. RIMANTADINE HYDROCHLORIDE [Suspect]
     Route: 048
     Dates: start: 20020605
  4. ZANAMIVIR [Suspect]
     Route: 055
     Dates: start: 20020605

REACTIONS (2)
  - DRUG INEFFECTIVE [None]
  - DRUG RESISTANCE [None]
